FAERS Safety Report 8178418-3 (Version None)
Quarter: 2012Q1

REPORT INFORMATION
  Report Type: 
  Country: None (occurrence: None)
  Receive Date: 20120301
  Receipt Date: 20120222
  Transmission Date: 20120608
  Serious: Yes (Other)
  Sender: FDA-Public Use
  Company Number: US-BAYER-2012-018392

PATIENT

DRUGS (1)
  1. SODIUM BICARBONATE [Suspect]
     Route: 048

REACTIONS (3)
  - FOAMING AT MOUTH [None]
  - OROPHARYNGEAL DISCOMFORT [None]
  - APPARENT DEATH [None]
